FAERS Safety Report 8514751-0 (Version None)
Quarter: 2012Q3

REPORT INFORMATION
  Report Type: 
  Country: None (occurrence: None)
  Receive Date: 20120711
  Receipt Date: 20120711
  Transmission Date: 20120928
  Serious: No
  Sender: FDA-Public Use
  Company Number: None

PATIENT
  Sex: Male
  Weight: 131.5431 kg

DRUGS (1)
  1. PRISTIQ [Suspect]
     Dosage: 50 MG DAILY PO
     Route: 048

REACTIONS (1)
  - PRODUCT QUALITY ISSUE [None]
